FAERS Safety Report 8965052 (Version 2)
Quarter: 2013Q2

REPORT INFORMATION
  Report Type: Spontaneous
  Country: FR (occurrence: FR)
  Receive Date: 20121213
  Receipt Date: 20130417
  Transmission Date: 20140414
  Serious: Yes (Hospitalization)
  Sender: FDA-Public Use
  Company Number: FR-ASTRAZENECA-2012SE92046

PATIENT
  Age: 37353 Day
  Sex: Female

DRUGS (8)
  1. INEXIUM [Suspect]
     Route: 048
     Dates: start: 2010, end: 201209
  2. CRESTOR [Suspect]
     Dosage: 20 MG EVERY DAY, LONG LASTING TREATMENT
     Route: 048
     Dates: end: 201209
  3. ESIDREX [Suspect]
     Route: 024
     Dates: start: 2002, end: 201209
  4. ALDACTONE [Suspect]
     Route: 048
     Dates: start: 2002, end: 201209
  5. GLUCOPHAGE [Concomitant]
     Route: 048
     Dates: start: 2007
  6. JANUVIA [Concomitant]
     Route: 048
     Dates: start: 2007
  7. AMLOR [Concomitant]
     Route: 048
     Dates: start: 2007
  8. BISOPROLOL [Concomitant]
     Dosage: 5 MILLIGRAMS DAILY, LONG LASTING TREATMENT
     Route: 048

REACTIONS (7)
  - Hypoparathyroidism [Recovered/Resolved]
  - Hypomagnesaemia [Recovered/Resolved]
  - Diarrhoea [Unknown]
  - Vomiting [Unknown]
  - Renal failure acute [Recovered/Resolved]
  - Rhabdomyolysis [Recovered/Resolved]
  - Pyelonephritis acute [Unknown]
